FAERS Safety Report 11965532 (Version 1)
Quarter: 2016Q1

REPORT INFORMATION
  Report Type: Spontaneous
  Country: JP (occurrence: JP)
  Receive Date: 20160127
  Receipt Date: 20160127
  Transmission Date: 20160526
  Serious: Yes (Other)
  Sender: FDA-Public Use
  Company Number: JP-PFIZER INC-2016036309

PATIENT
  Age: 85 Year
  Sex: Male

DRUGS (4)
  1. SHAKUYAKUKANZOTO [Interacting]
     Active Substance: HERBALS
  2. LYRICA [Suspect]
     Active Substance: PREGABALIN
     Route: 048
  3. FUROSEMIDE. [Interacting]
     Active Substance: FUROSEMIDE
  4. YOKUKANSAN [Interacting]
     Active Substance: HERBALS

REACTIONS (4)
  - Drug interaction [Unknown]
  - Oedema peripheral [Unknown]
  - Fluid retention [Unknown]
  - Weight increased [Unknown]
